FAERS Safety Report 6879194-4 (Version None)
Quarter: 2010Q3

REPORT INFORMATION
  Report Type: 
  Country: None (occurrence: None)
  Receive Date: 20100728
  Receipt Date: 20100726
  Transmission Date: 20110219
  Serious: Yes (Other)
  Sender: FDA-Public Use
  Company Number: US-ROXANE LABORATORIES, INC.-2010-RO-00914RO

PATIENT
  Age: 71 Year
  Sex: Female

DRUGS (1)
  1. LITHIUM CARBONATE [Suspect]

REACTIONS (9)
  - CEREBRAL ATROPHY [None]
  - DYSARTHRIA [None]
  - DYSPHAGIA [None]
  - GAIT DISTURBANCE [None]
  - GAZE PALSY [None]
  - INCONTINENCE [None]
  - PARKINSONISM [None]
  - PROGRESSIVE SUPRANUCLEAR PALSY [None]
  - THERAPEUTIC AGENT TOXICITY [None]
